FAERS Safety Report 12000559 (Version 1)
Quarter: 2016Q1

REPORT INFORMATION
  Report Type: Spontaneous
  Country: US (occurrence: None)
  Receive Date: 20160203
  Receipt Date: 20160203
  Transmission Date: 20160526
  Serious: No
  Sender: FDA-Public Use
  Company Number: None

PATIENT

DRUGS (1)
  1. FINESTERIDE [Suspect]
     Active Substance: FINASTERIDE

REACTIONS (1)
  - Hair growth abnormal [None]
